FAERS Safety Report 9222871 (Version 2)
Quarter: 2013Q2

REPORT INFORMATION
  Report Type: Report from Study
  Country: ES (occurrence: ES)
  Receive Date: 20130410
  Receipt Date: 20130513
  Transmission Date: 20140414
  Serious: Yes (Other)
  Sender: FDA-Public Use
  Company Number: ES-ROCHE-1208957

PATIENT
  Sex: 0

DRUGS (1)
  1. ALTEPLASE [Suspect]
     Indication: ISCHAEMIC STROKE
     Dosage: 10% AS BOLUS, 90% AS CONTINUOUS IV INFUSION DURING 60 MIN
     Route: 042

REACTIONS (6)
  - Cerebral artery occlusion [Unknown]
  - Drug ineffective [Unknown]
  - Drug effect decreased [Unknown]
  - Drug ineffective [Unknown]
  - Neurological decompensation [Unknown]
  - Haemorrhage intracranial [Unknown]
